FAERS Safety Report 20949380 (Version 2)
Quarter: 2022Q2

REPORT INFORMATION
  Report Type: Spontaneous
  Country: RU (occurrence: RU)
  Receive Date: 20220613
  Receipt Date: 20220630
  Transmission Date: 20220720
  Serious: Yes (Hospitalization, Other)
  Sender: FDA-Public Use
  Company Number: RU-002147023-NVSC2022RU128580

PATIENT
  Age: 76 Year
  Sex: Male

DRUGS (6)
  1. LUCENTIS [Suspect]
     Active Substance: RANIBIZUMAB
     Indication: Neovascular age-related macular degeneration
     Dosage: UNK, STATR DATE WAS SEP.
     Route: 042
  2. LUCENTIS [Suspect]
     Active Substance: RANIBIZUMAB
     Route: 050
     Dates: start: 20210907, end: 20210907
  3. BROLUCIZUMAB [Suspect]
     Active Substance: BROLUCIZUMAB
     Indication: Neovascular age-related macular degeneration
     Dosage: UNK, START DATE WAS NOV.
     Route: 050
  4. BROLUCIZUMAB [Suspect]
     Active Substance: BROLUCIZUMAB
     Dosage: 6 MG (0.05 ML), INTRAVITREAL INJECTION, ADMINISTERED INTO LEFT EYE
     Route: 050
     Dates: start: 20211130, end: 20220524
  5. BROLUCIZUMAB [Suspect]
     Active Substance: BROLUCIZUMAB
     Route: 050
     Dates: start: 20220201
  6. BROLUCIZUMAB [Suspect]
     Active Substance: BROLUCIZUMAB
     Route: 050
     Dates: start: 20220524

REACTIONS (3)
  - COVID-19 [Recovered/Resolved]
  - Vitritis [Recovering/Resolving]
  - Eye inflammation [Unknown]

NARRATIVE: CASE EVENT DATE: 20220602
